FAERS Safety Report 24357257 (Version 2)
Quarter: 2024Q4

REPORT INFORMATION
  Report Type: Spontaneous
  Country: IT (occurrence: IT)
  Receive Date: 20240924
  Receipt Date: 20241125
  Transmission Date: 20250115
  Serious: Yes (Hospitalization, Other)
  Sender: HIKMA
  Company Number: IT-MLMSERVICE-20240906-PI186741-00128-1

PATIENT
  Age: 71 Year
  Sex: Male
  Weight: 54 kg

DRUGS (5)
  1. ADCETRIS [Suspect]
     Active Substance: BRENTUXIMAB VEDOTIN
     Dosage: REDUCED TO 0.9 MG/KG (50 MG) ON DAY 1 AND DAY 15 OF EACH CYCLE OF 28 DAYS; 4 CYCLES
     Route: 042
     Dates: start: 20221202, end: 20230113
  2. ADCETRIS [Suspect]
     Active Substance: BRENTUXIMAB VEDOTIN
     Indication: Hodgkin^s disease nodular sclerosis stage IV
     Dosage: 1.2 MG/KG (75 MG) ON DAY 1 AND DAY 15 OF EACH CYCLE OF 28 DAYS; 2 CYCLES
     Route: 042
     Dates: start: 20220705, end: 20221118
  3. DACARBAZINE [Suspect]
     Active Substance: DACARBAZINE
     Indication: Hodgkin^s disease nodular sclerosis stage IV
     Dosage: 375 MG/MQ (640 MG), ON DAY 1 AND DAY 15 OF EACH CYCLE OF 28 DAYS, FOR 6 CYCLES IN TOTAL
     Route: 042
     Dates: start: 20220705, end: 20230113
  4. DOXORUBICIN [Suspect]
     Active Substance: DOXORUBICIN
     Indication: Hodgkin^s disease nodular sclerosis stage IV
     Dosage: 25 MG/MQ (43 MG), ON DAY 1 AND DAY 15 OF EACH CYCLE OF 28 DAYS, FOR 6 CYCLES IN TOTAL
     Route: 042
     Dates: start: 20220705, end: 20230113
  5. VINBLASTINE [Suspect]
     Active Substance: VINBLASTINE
     Indication: Hodgkin^s disease nodular sclerosis stage IV
     Dosage: 6 MG/MQ (10 MG), ON DAY 1 AND DAY 15 OF EACH CYCLE OF 28 DAYS, FOR 6 CYCLES IN TOTAL
     Route: 042
     Dates: start: 20220705, end: 20230113

REACTIONS (6)
  - Neuropathy peripheral [Not Recovered/Not Resolved]
  - Posterior reversible encephalopathy syndrome [Recovered/Resolved]
  - Dysphonia [Recovered/Resolved]
  - Mucosal inflammation [Recovered/Resolved]
  - Febrile neutropenia [Recovered/Resolved]
  - Dizziness [Not Recovered/Not Resolved]

NARRATIVE: CASE EVENT DATE: 20220715
